FAERS Safety Report 20057000 (Version 1)
Quarter: 2021Q4

REPORT INFORMATION
  Report Type: Spontaneous
  Country: US (occurrence: US)
  Receive Date: 20211111
  Receipt Date: 20211111
  Transmission Date: 20220303
  Serious: Yes (Other)
  Sender: FDA-Public Use
  Company Number: US-GLENMARK PHARMACEUTICALS-2021GMK068772

PATIENT
  Age: 69 Year
  Sex: Male

DRUGS (1)
  1. SIROLIMUS [Suspect]
     Active Substance: SIROLIMUS
     Indication: Immunosuppression
     Dosage: UNK, OVER 7 YEARS
     Route: 065

REACTIONS (3)
  - Optic neuropathy [Recovering/Resolving]
  - Toxicity to various agents [Unknown]
  - Product use issue [Unknown]
